FAERS Safety Report 20687166 (Version 1)
Quarter: 2022Q2

REPORT INFORMATION
  Report Type: Spontaneous
  Country: CN (occurrence: CN)
  Receive Date: 20220407
  Receipt Date: 20220407
  Transmission Date: 20220721
  Serious: Yes (Other)
  Sender: FDA-Public Use
  Company Number: CN-BAXTER-2022BAX007298

PATIENT
  Age: 59 Year
  Sex: Female
  Weight: 62 kg

DRUGS (2)
  1. MANNITOL [Suspect]
     Active Substance: MANNITOL
     Indication: Diuretic therapy
     Route: 041
     Dates: start: 20220322, end: 20220328
  2. MANNITOL [Suspect]
     Active Substance: MANNITOL
     Indication: Oedema

REACTIONS (1)
  - Pruritus [Recovering/Resolving]

NARRATIVE: CASE EVENT DATE: 20220328
